FAERS Safety Report 10259432 (Version 2)
Quarter: 2014Q2

REPORT INFORMATION
  Report Type: Spontaneous
  Country: US (occurrence: US)
  Receive Date: 20140625
  Receipt Date: 20140625
  Transmission Date: 20141212
  Serious: No
  Sender: FDA-Public Use
  Company Number: US-ASTELLAS-2014US005164

PATIENT
  Age: 87 Year
  Sex: Female

DRUGS (3)
  1. VESICARE [Suspect]
     Indication: MICTURITION URGENCY
     Route: 065
     Dates: start: 20140430
  2. VESICARE [Suspect]
     Indication: POLLAKIURIA
  3. VESICARE [Suspect]
     Indication: POLLAKIURIA

REACTIONS (1)
  - Drug ineffective [Recovered/Resolved]
